FAERS Safety Report 7886514-0 (Version None)
Quarter: 2011Q4

REPORT INFORMATION
  Report Type: 
  Country: None (occurrence: None)
  Receive Date: 20111102
  Receipt Date: 20110707
  Transmission Date: 20120403
  Serious: Yes (Other)
  Sender: FDA-Public Use
  Company Number: US-AMGEN-USASP2011034571

PATIENT
  Sex: Female

DRUGS (5)
  1. FISH OIL [Concomitant]
  2. VITAMIN C                          /00008001/ [Concomitant]
  3. ENBREL [Suspect]
     Indication: RHEUMATOID ARTHRITIS
     Dosage: 50 MG, QWK
     Route: 058
     Dates: start: 20110101, end: 20110601
  4. M.V.I. [Concomitant]
  5. ZOLOFT [Concomitant]

REACTIONS (7)
  - LIP SWELLING [None]
  - HYPERSENSITIVITY [None]
  - SWELLING FACE [None]
  - DRUG INEFFECTIVE [None]
  - EYE PRURITUS [None]
  - EYE SWELLING [None]
  - STOMATITIS [None]
